FAERS Safety Report 11359590 (Version 1)
Quarter: 2015Q3

REPORT INFORMATION
  Report Type: Spontaneous
  Country: US (occurrence: None)
  Receive Date: 20150807
  Receipt Date: 20150807
  Transmission Date: 20151125
  Serious: Yes (Hospitalization, Other)
  Sender: FDA-Public Use
  Company Number: None

PATIENT
  Age: 80 Year
  Sex: Female
  Weight: 128 kg

DRUGS (15)
  1. APIXABAN [Suspect]
     Active Substance: APIXABAN
     Indication: ATRIAL FIBRILLATION
     Route: 048
     Dates: start: 20141215, end: 20150727
  2. RANOLAZINE ER [Concomitant]
  3. METFORMIN [Concomitant]
     Active Substance: METFORMIN HYDROCHLORIDE
  4. MAGNESIUM OXDIE [Concomitant]
  5. POTASSIUM CHLORIDE (KDUR) [Concomitant]
  6. METOPROLOL TARTRATE. [Concomitant]
     Active Substance: METOPROLOL TARTRATE
  7. PROCTOCREAM HC [Concomitant]
     Active Substance: HYDROCORTISONE
  8. COLCHICINE. [Concomitant]
     Active Substance: COLCHICINE
  9. ASPIRIN 81 MG [Suspect]
     Active Substance: ASPIRIN
     Indication: ATRIAL FIBRILLATION
     Route: 048
     Dates: start: 20110822, end: 20150727
  10. ATORVASTIN [Concomitant]
     Active Substance: ATORVASTATIN
  11. RANEXA [Concomitant]
     Active Substance: RANOLAZINE
  12. FUROSEMIDE. [Concomitant]
     Active Substance: FUROSEMIDE
  13. VITAMIN D [Concomitant]
     Active Substance: CHOLECALCIFEROL
  14. VITAMIN B12 [Concomitant]
     Active Substance: CYANOCOBALAMIN
  15. VITAMIN D [Concomitant]
     Active Substance: CHOLECALCIFEROL

REACTIONS (3)
  - Adrenal insufficiency [None]
  - Hypotension [None]
  - Adrenal haemorrhage [None]

NARRATIVE: CASE EVENT DATE: 20150727
